FAERS Safety Report 12807313 (Version 1)
Quarter: 2016Q4

REPORT INFORMATION
  Report Type: Spontaneous
  Country: US (occurrence: US)
  Receive Date: 20161004
  Receipt Date: 20161004
  Transmission Date: 20170207
  Serious: Yes (Hospitalization, Other)
  Sender: FDA-Public Use
  Company Number: US-009507513-1610USA000151

PATIENT
  Age: 26 Year
  Sex: Female
  Weight: 86.17 kg

DRUGS (1)
  1. NUVARING [Suspect]
     Active Substance: ETHINYL ESTRADIOL\ETONOGESTREL
     Indication: CONTRACEPTION
     Dosage: AS PRESCRIBED
     Route: 067
     Dates: start: 201211, end: 201609

REACTIONS (2)
  - Pulmonary embolism [Recovering/Resolving]
  - Myocardial strain [Recovering/Resolving]

NARRATIVE: CASE EVENT DATE: 20160908
